FAERS Safety Report 17261178 (Version 1)
Quarter: 2020Q1

REPORT INFORMATION
  Report Type: Spontaneous
  Country: US (occurrence: US)
  Receive Date: 20200113
  Receipt Date: 20200113
  Transmission Date: 20200409
  Serious: Yes (Other)
  Sender: FDA-Public Use
  Company Number: US-GLAXOSMITHKLINE-US2020004016

PATIENT
  Sex: Female

DRUGS (1)
  1. NUCALA [Suspect]
     Active Substance: MEPOLIZUMAB
     Indication: ASTHMA
     Dosage: UNK
     Route: 058
     Dates: start: 201810

REACTIONS (14)
  - Dyspnoea [Unknown]
  - Headache [Unknown]
  - Renal disorder [Recovering/Resolving]
  - Blood glucose increased [Recovering/Resolving]
  - Renal failure [Unknown]
  - Laboratory test abnormal [Unknown]
  - Fatigue [Unknown]
  - Renal pain [Unknown]
  - Peripheral swelling [Unknown]
  - Pain [Unknown]
  - Paraesthesia [Unknown]
  - Nausea [Unknown]
  - Hypoaesthesia [Unknown]
  - Swelling [Unknown]
